FAERS Safety Report 9401499 (Version 3)
Quarter: 2013Q3

REPORT INFORMATION
  Report Type: Spontaneous
  Country: GB (occurrence: GB)
  Receive Date: 20130716
  Receipt Date: 20130913
  Transmission Date: 20140515
  Serious: Yes (Other)
  Sender: FDA-Public Use
  Company Number: GB-AMGEN-GBRSP2013049206

PATIENT
  Age: 59 Year
  Sex: Female

DRUGS (2)
  1. ENBREL [Suspect]
     Indication: PRODUCT USED FOR UNKNOWN INDICATION
     Dosage: 25 MG, WEEKLY
     Route: 065
     Dates: start: 20130514
  2. ENBREL [Suspect]
     Dosage: 50 MG, WEEKLY
     Route: 065

REACTIONS (3)
  - Urinary tract infection [Unknown]
  - Candida infection [Unknown]
  - Infected skin ulcer [Unknown]
